FAERS Safety Report 7364559-7 (Version None)
Quarter: 2011Q1

REPORT INFORMATION
  Report Type: 
  Country: None (occurrence: None)
  Receive Date: 20110321
  Receipt Date: 20110311
  Transmission Date: 20110831
  Serious: Yes (Death)
  Sender: FDA-Public Use
  Company Number: IL-ACTELION-A-CH2011-46332

PATIENT
  Age: 59 Year
  Sex: Female

DRUGS (5)
  1. TRACLEER [Suspect]
     Indication: SKIN ULCER
     Dosage: UNK , UNK
     Route: 048
  2. CYCLOPHOSPHAMIDE [Concomitant]
  3. EPOPROSTENOL SODIUM [Concomitant]
  4. CORTICOSTEROIDS [Concomitant]
  5. PROTON PUMP INHIBITORS [Concomitant]

REACTIONS (2)
  - SEPSIS [None]
  - PULMONARY ARTERIAL HYPERTENSION [None]
